FAERS Safety Report 8094866-4 (Version None)
Quarter: 2012Q1

REPORT INFORMATION
  Report Type: 
  Country: None (occurrence: None)
  Receive Date: 20120130
  Receipt Date: 20120118
  Transmission Date: 20120608
  Serious: Yes (Other)
  Sender: FDA-Public Use
  Company Number: US-AMGEN-USASP2011068841

PATIENT
  Age: 47 Year
  Sex: Female

DRUGS (5)
  1. ACETYLSALICYLIC ACID SRT [Concomitant]
     Indication: CEREBROVASCULAR ACCIDENT
     Dosage: 81 MG, UNK
  2. PREVACID [Concomitant]
     Indication: GASTROOESOPHAGEAL REFLUX DISEASE
     Dosage: 30 MG, UNK
  3. ENBREL [Suspect]
     Indication: ANKYLOSING SPONDYLITIS
     Dosage: 50 MG, PER ML PREFILLED SYRINGE INJECTED SC ONCE PER WEEK
     Route: 058
     Dates: start: 20071001, end: 20111201
  4. ENBREL [Suspect]
     Dosage: 50 MG, PER ML PREFILLED SYRINGE INJECTED SC ONCE PER WEEK
     Route: 058
     Dates: start: 20071001, end: 20111201
  5. ETODOLAC [Concomitant]
     Indication: ANKYLOSING SPONDYLITIS
     Dosage: 400 MG, UNK

REACTIONS (2)
  - HYPOAESTHESIA [None]
  - DEMYELINATION [None]
